FAERS Safety Report 4918452-7 (Version None)
Quarter: 2006Q1

REPORT INFORMATION
  Report Type: 
  Country: None (occurrence: None)
  Receive Date: 20060217
  Receipt Date: 20060217
  Transmission Date: 20060701
  Serious: Yes (Hospitalization)
  Sender: FDA-Public Use
  Company Number: None

PATIENT
  Age: 42 Year
  Sex: Female
  Weight: 79.3795 kg

DRUGS (1)
  1. ORTHO EVRA [Suspect]
     Indication: UTERINE LEIOMYOMA
     Dosage: TOPICAL
     Route: 061
     Dates: start: 20021201, end: 20030101

REACTIONS (2)
  - MIGRAINE [None]
  - PULMONARY EMBOLISM [None]
